FAERS Safety Report 6195058-6 (Version None)
Quarter: 2009Q2

REPORT INFORMATION
  Report Type: 
  Country: None (occurrence: None)
  Receive Date: 20090519
  Receipt Date: 20090515
  Transmission Date: 20091009
  Serious: Yes (Life-Threatening, Other)
  Sender: FDA-Public Use
  Company Number: US-RB-015570-09

PATIENT
  Sex: Female

DRUGS (1)
  1. SUBOXONE [Suspect]
     Indication: DRUG USE FOR UNKNOWN INDICATION
     Dosage: DOSING INFORMATION NOT PROVIDED.
     Route: 065

REACTIONS (4)
  - EXERCISE ELECTROCARDIOGRAM ABNORMAL [None]
  - HEPATIC ENZYME INCREASED [None]
  - RENAL FAILURE [None]
  - RHABDOMYOLYSIS [None]
